FAERS Safety Report 7613037-6 (Version None)
Quarter: 2011Q3

REPORT INFORMATION
  Report Type: 
  Country: None (occurrence: None)
  Receive Date: 20110713
  Receipt Date: 20110422
  Transmission Date: 20111222
  Serious: No
  Sender: FDA-Public Use
  Company Number: US-005198

PATIENT
  Age: 68 Year
  Sex: Male
  Weight: 121.564 kg

DRUGS (13)
  1. AVONEX [Concomitant]
  2. CELEBREX [Concomitant]
  3. MULTI-VITAMIN [Concomitant]
  4. CINNAMON [Concomitant]
  5. DEGARELIX 240 MG [Suspect]
     Indication: PROSTATE CANCER
     Dosage: (240 MG 1X SUBCUTANEOUS)
     Route: 058
     Dates: start: 20110418, end: 20110418
  6. METFORMIN HCL [Concomitant]
  7. PREVACID [Concomitant]
  8. RANITIDINE [Concomitant]
  9. ATENOLOL [Concomitant]
  10. PROVIGIL [Concomitant]
  11. COZAAR [Concomitant]
  12. DIPENTUM [Concomitant]
  13. B12-VITAMIN [Concomitant]

REACTIONS (5)
  - INJECTION SITE DISCOMFORT [None]
  - INJECTION SITE ERYTHEMA [None]
  - INJECTION SITE INDURATION [None]
  - INJECTION SITE PRURITUS [None]
  - INJECTION SITE SWELLING [None]
